FAERS Safety Report 18017017 (Version 2)
Quarter: 2023Q4

REPORT INFORMATION
  Report Type: Report from Study
  Country: FR (occurrence: FR)
  Receive Date: 20200714
  Receipt Date: 20231102
  Transmission Date: 20240109
  Serious: Yes (Death, Other)
  Sender: FDA-Public Use
  Company Number: FR-JNJFOC-20200710171

PATIENT
  Age: 73 Year
  Sex: Female

DRUGS (4)
  1. BORTEZOMIB [Suspect]
     Active Substance: BORTEZOMIB
     Indication: Plasma cell myeloma
     Dosage: 1.3 MILLIGRAM/SQ. METER, 2/WEEK
     Route: 065
     Dates: end: 20190227
  2. DEXAMETHASONE [Suspect]
     Active Substance: DEXAMETHASONE
     Indication: Plasma cell myeloma
     Dosage: 20 MILLIGRAM, 2/WEEK
     Route: 065
     Dates: end: 20190227
  3. DARZALEX [Suspect]
     Active Substance: DARATUMUMAB
     Indication: Plasma cell myeloma
     Dosage: 16 MILLIGRAM/SQ. METER, 1/WEEK
     Route: 065
     Dates: end: 20190227
  4. DARZALEX [Suspect]
     Active Substance: DARATUMUMAB
     Dosage: 16 MILLIGRAM/SQ. METER, 1/WEEK
     Route: 065
     Dates: end: 20190227

REACTIONS (3)
  - Plasma cell myeloma [Fatal]
  - Intentional product use issue [Unknown]
  - Off label use [Unknown]
